FAERS Safety Report 7746352-6 (Version None)
Quarter: 2011Q3

REPORT INFORMATION
  Report Type: 
  Country: None (occurrence: None)
  Receive Date: 20110907
  Receipt Date: 20110823
  Transmission Date: 20111222
  Serious: Yes (Life-Threatening, Hospitalization, Disabling)
  Sender: FDA-Public Use
  Company Number: 2011AP001851

PATIENT
  Age: 63 Year
  Sex: Female

DRUGS (18)
  1. ALLOPURINOL [Concomitant]
  2. AMOXICILLIN TRIHYDRATE [Concomitant]
  3. HYSCINE (HYOSCINE) [Concomitant]
  4. ESTRADIOL [Concomitant]
  5. COLCHICINE [Suspect]
     Indication: GOUT
     Dosage: 500 UG;PO;BID
     Route: 048
     Dates: start: 20110224, end: 20110424
  6. DOSULEPIN (DOSULEPIN) [Concomitant]
  7. LEVETIRACETAM [Concomitant]
  8. ACETAMINOPHEN [Concomitant]
  9. PIPERACILLIN SODIUM [Concomitant]
  10. TAZOBACTAM SODIUM (TAZOBACTAM SODIUM) [Concomitant]
  11. CLARITHROMYCIN [Suspect]
     Indication: PNEUMONIA
     Dosage: 500 MG;BID
     Dates: start: 20110423, end: 20110428
  12. ATENOLOL [Concomitant]
  13. MOXONIDINE (MOXONIDINE) [Concomitant]
  14. LEVOTHYROXINE SODIUM [Concomitant]
  15. CYCLOSPORINE [Suspect]
     Indication: RENAL TRANSPLANT
     Dosage: 75 MG;PO;BID
     Route: 048
     Dates: end: 20110426
  16. NORETHISTERONE ACETATE (NORETHISTERONE ACETATE) [Concomitant]
  17. CLAVULANATE POTASSIUM (CLAVULANATE POTASSIUM) [Concomitant]
  18. METRONIDAZOLE [Concomitant]

REACTIONS (14)
  - DIARRHOEA [None]
  - BLOOD CREATINE PHOSPHOKINASE INCREASED [None]
  - NEUROPATHY PERIPHERAL [None]
  - BLOOD CALCIUM DECREASED [None]
  - PANCYTOPENIA [None]
  - RENAL FAILURE ACUTE [None]
  - PARAPARESIS [None]
  - NAUSEA [None]
  - VOMITING [None]
  - GUILLAIN-BARRE SYNDROME [None]
  - MALAISE [None]
  - ASTHENIA [None]
  - DRUG INTERACTION [None]
  - METABOLIC ACIDOSIS [None]
